FAERS Safety Report 5064367-6 (Version None)
Quarter: 2006Q3

REPORT INFORMATION
  Report Type: 
  Country: None (occurrence: None)
  Receive Date: 20060728
  Receipt Date: 20060720
  Transmission Date: 20061208
  Serious: Yes (Hospitalization)
  Sender: FDA-Public Use
  Company Number: US-JNJFOC-20060704420

PATIENT
  Age: 30 Year
  Sex: Female
  Weight: 53.98 kg

DRUGS (1)
  1. SPORANOX [Suspect]
     Indication: TINEA VERSICOLOUR
     Route: 048

REACTIONS (1)
  - HAEMOGLOBIN DECREASED [None]
